FAERS Safety Report 12884934 (Version 2)
Quarter: 2016Q4

REPORT INFORMATION
  Report Type: Spontaneous
  Country: IT (occurrence: IT)
  Receive Date: 20161026
  Receipt Date: 20161118
  Transmission Date: 20170207
  Serious: Yes (Hospitalization, Other)
  Sender: FDA-Public Use
  Company Number: IT-SUN PHARMACEUTICAL INDUSTRIES LTD-2016RR-126387

PATIENT
  Age: 70 Year
  Sex: Female

DRUGS (3)
  1. IMATINIB [Suspect]
     Active Substance: IMATINIB
     Indication: ACUTE LYMPHOCYTIC LEUKAEMIA
     Dosage: 400 MG, DAILY
     Route: 065
     Dates: end: 200505
  2. IMATINIB [Suspect]
     Active Substance: IMATINIB
     Indication: ACUTE LYMPHOCYTIC LEUKAEMIA
     Dosage: 800 MG, DAILY
     Route: 065
     Dates: start: 200310
  3. IMATINIB [Suspect]
     Active Substance: IMATINIB
     Indication: ACUTE LYMPHOCYTIC LEUKAEMIA
     Dosage: 600 MG, DAILY
     Route: 065
     Dates: start: 200505

REACTIONS (3)
  - Drug ineffective [Unknown]
  - Drug resistance [Unknown]
  - Gastrointestinal disorder [Unknown]
